FAERS Safety Report 23370665 (Version 1)
Quarter: 2024Q1

REPORT INFORMATION
  Report Type: Spontaneous
  Country: EG (occurrence: EG)
  Receive Date: 20240105
  Receipt Date: 20240105
  Transmission Date: 20240410
  Serious: Yes (Hospitalization)
  Sender: FDA-Public Use
  Company Number: EG-ELI_LILLY_AND_COMPANY-EG202401001892

PATIENT
  Sex: Male

DRUGS (9)
  1. EMGALITY [Suspect]
     Active Substance: GALCANEZUMAB-GNLM
     Indication: Migraine
     Dosage: 240 MG, SINGLE, LOADING DOSE
     Route: 058
     Dates: start: 202202, end: 202202
  2. EMGALITY [Suspect]
     Active Substance: GALCANEZUMAB-GNLM
     Indication: Cluster headache
     Dosage: 120 MG, MONTHLY (1/M)
     Route: 058
     Dates: start: 202203, end: 202205
  3. EMGALITY [Suspect]
     Active Substance: GALCANEZUMAB-GNLM
     Indication: Trigeminal nerve disorder
     Dosage: 120 MG, MONTHLY (1/M)
     Route: 058
     Dates: start: 20220518
  4. NEXIUM I.V. [Concomitant]
     Active Substance: ESOMEPRAZOLE SODIUM
     Indication: Gastric ulcer
     Dosage: 40 MG, UNKNOWN
     Route: 065
  5. REBAMIPIDE [Concomitant]
     Active Substance: REBAMIPIDE
     Indication: Gastric ulcer
     Dosage: UNK UNK, UNKNOWN
     Route: 065
  6. GAST-REG [Concomitant]
     Indication: Gastric ulcer
     Dosage: 200 MG, UNKNOWN
     Route: 065
  7. INDERAL [Concomitant]
     Active Substance: PROPRANOLOL HYDROCHLORIDE
     Indication: Hypertension
     Dosage: 40 MG, UNKNOWN
     Route: 065
  8. ATACAND [Concomitant]
     Active Substance: CANDESARTAN CILEXETIL
     Indication: Hypertension
     Dosage: UNK UNK, UNKNOWN
     Route: 065
  9. ISOPTIN [Concomitant]
     Active Substance: VERAPAMIL HYDROCHLORIDE
     Indication: Hypertension
     Dosage: UNK UNK, UNKNOWN
     Route: 065

REACTIONS (2)
  - Migraine [Recovering/Resolving]
  - Drug ineffective [Recovered/Resolved]
